FAERS Safety Report 9803449 (Version 3)
Quarter: 2014Q3

REPORT INFORMATION
  Report Type: Not Available
  Country: SE (occurrence: SE)
  Receive Date: 20140108
  Receipt Date: 20140804
  Transmission Date: 20150326
  Serious: Yes (Hospitalization)
  Sender: FDA-Public Use
  Company Number: SE-IAC JAPAN XML-GBR-2013-0016772

PATIENT
  Age: 79 Year
  Sex: Male

DRUGS (4)
  1. NORSPAN [Suspect]
     Active Substance: BUPRENORPHINE
     Indication: PARAESTHESIA
     Dosage: UNK
     Route: 062
     Dates: start: 201308, end: 20130819
  2. NORSPAN [Suspect]
     Active Substance: BUPRENORPHINE
     Indication: PAIN
     Dosage: UNK
     Route: 062
     Dates: start: 20130910, end: 20131002
  3. TROMBYL [Concomitant]
     Active Substance: ASPIRIN
     Indication: ATRIAL FIBRILLATION
  4. CITALOPRAM [Concomitant]
     Active Substance: CITALOPRAM HYDROBROMIDE

REACTIONS (8)
  - Muscle contractions involuntary [Recovered/Resolved]
  - Fatigue [Unknown]
  - General physical health deterioration [Recovered/Resolved]
  - Decreased appetite [Unknown]
  - C-reactive protein increased [Recovered/Resolved]
  - Dehydration [Unknown]
  - Pyrexia [Unknown]
  - Confusional state [Unknown]

NARRATIVE: CASE EVENT DATE: 20130930
